FAERS Safety Report 10180116 (Version 1)
Quarter: 2014Q2

REPORT INFORMATION
  Report Type: Spontaneous
  Country: US (occurrence: US)
  Receive Date: 20140519
  Receipt Date: 20140519
  Transmission Date: 20141212
  Serious: No
  Sender: FDA-Public Use
  Company Number: US-AMGEN INC.-USASP2013076984

PATIENT
  Age: 73 Year
  Sex: Female

DRUGS (2)
  1. PROLIA [Suspect]
     Indication: OSTEOPOROSIS POSTMENOPAUSAL
     Dosage: 60 MG, Q6MO
     Route: 065
     Dates: start: 20130924
  2. PREMARIN [Concomitant]
     Dosage: UNK, LOW DOSE

REACTIONS (2)
  - Musculoskeletal chest pain [Recovering/Resolving]
  - Back pain [Recovering/Resolving]
